FAERS Safety Report 6289396-6 (Version None)
Quarter: 2009Q3

REPORT INFORMATION
  Report Type: 
  Country: None (occurrence: None)
  Receive Date: 20090730
  Receipt Date: 20090720
  Transmission Date: 20100115
  Serious: Yes (Other)
  Sender: FDA-Public Use
  Company Number: GB-ELI_LILLY_AND_COMPANY-GB200907004269

PATIENT
  Age: 73 Year
  Sex: Male
  Weight: 126 kg

DRUGS (3)
  1. BYETTA [Suspect]
     Indication: WEIGHT DECREASED
     Dosage: 5 UG, UNKNOWN
     Route: 058
     Dates: start: 20090505, end: 20090519
  2. GLICLAZIDE [Concomitant]
     Indication: DIABETES MELLITUS
     Dosage: 160 MG, 2/D
     Route: 048
     Dates: start: 20090505, end: 20090528
  3. INSULIN [Concomitant]
     Indication: DIABETES MELLITUS
     Dosage: UNK, UNKNOWN
     Route: 058
     Dates: end: 20090505

REACTIONS (3)
  - DYSPNOEA [None]
  - HYPOKINESIA [None]
  - OFF LABEL USE [None]
